FAERS Safety Report 10496249 (Version 4)
Quarter: 2014Q4

REPORT INFORMATION
  Report Type: Spontaneous
  Country: FR (occurrence: FR)
  Receive Date: 20141003
  Receipt Date: 20141216
  Transmission Date: 20150528
  Serious: Yes (Disabling, Congenital Anomaly, Other)
  Sender: FDA-Public Use
  Company Number: FR-ABBVIE-07P-056-0359029-00

PATIENT
  Sex: Male

DRUGS (2)
  1. DEPAKENE [Suspect]
     Active Substance: VALPROIC ACID
     Indication: MATERNAL EXPOSURE TIMING UNSPECIFIED
     Route: 064
  2. FOLIC ACID. [Suspect]
     Active Substance: FOLIC ACID
     Indication: MATERNAL EXPOSURE TIMING UNSPECIFIED
     Route: 064

REACTIONS (34)
  - Angiotensin converting enzyme inhibitor foetopathy [Unknown]
  - Dyspraxia [Unknown]
  - Skull malformation [Unknown]
  - Dysgraphia [Unknown]
  - Encopresis [Unknown]
  - Enuresis [Unknown]
  - Congenital central nervous system anomaly [Unknown]
  - Hypotonia [Unknown]
  - Craniosynostosis [Recovered/Resolved]
  - Scoliosis [Unknown]
  - Encopresis [Unknown]
  - Reading disorder [Unknown]
  - Atrial septal defect [Not Recovered/Not Resolved]
  - Dysphagia [Unknown]
  - Periventricular nodular heterotopia [Unknown]
  - Atrial septal defect [Unknown]
  - Periventricular nodular heterotopia [Unknown]
  - Dysmorphism [Unknown]
  - Migraine [Unknown]
  - Motor dysfunction [Unknown]
  - Motor developmental delay [Unknown]
  - Faecaloma [Unknown]
  - Foetal exposure during pregnancy [Unknown]
  - Social avoidant behaviour [Unknown]
  - Cerebral disorder [Unknown]
  - Dyspraxia [Unknown]
  - Head deformity [Unknown]
  - Cryptorchism [Unknown]
  - Constipation [Unknown]
  - Enuresis [Unknown]
  - Headache [Unknown]
  - Musculoskeletal stiffness [Unknown]
  - Psychomotor retardation [Unknown]
  - Cryptorchism [Unknown]

NARRATIVE: CASE EVENT DATE: 2001
